FAERS Safety Report 6102312-2 (Version None)
Quarter: 2009Q1

REPORT INFORMATION
  Report Type: 
  Country: None (occurrence: None)
  Receive Date: 20090304
  Receipt Date: 20090217
  Transmission Date: 20090719
  Serious: Yes (Life-Threatening)
  Sender: FDA-Public Use
  Company Number: CH-BRISTOL-MYERS SQUIBB COMPANY-14528293

PATIENT
  Age: 50 Year
  Sex: Male
  Weight: 83 kg

DRUGS (8)
  1. CETUXIMAB [Suspect]
     Indication: OESOPHAGEAL CARCINOMA
     Dosage: RECENT INFUSION-24DEC08
     Route: 042
     Dates: start: 20081224, end: 20081224
  2. CISPLATIN [Suspect]
     Indication: OESOPHAGEAL CARCINOMA
     Dosage: RECENT INFUSION-24DEC08
     Route: 042
     Dates: start: 20081224, end: 20081224
  3. TAXOTERE [Suspect]
     Indication: OESOPHAGEAL CARCINOMA
     Dosage: RECENT INFUSION-24DEC08
     Route: 042
     Dates: start: 20081224, end: 20081224
  4. RADIATION THERAPY [Suspect]
     Indication: OESOPHAGEAL CARCINOMA
     Dosage: RECENT THERAPY-31DEC08
     Dates: start: 20081231, end: 20081231
  5. NEXIUM [Concomitant]
     Route: 048
  6. MAGNESIOCARD [Concomitant]
     Route: 048
  7. CONCORDIN [Concomitant]
     Route: 048
  8. FRAXIFORTE [Concomitant]
     Route: 058

REACTIONS (2)
  - ANASTOMOTIC COMPLICATION [None]
  - ANASTOMOTIC LEAK [None]
